FAERS Safety Report 20641702 (Version 2)
Quarter: 2022Q2

REPORT INFORMATION
  Report Type: Spontaneous
  Country: JP (occurrence: JP)
  Receive Date: 20220328
  Receipt Date: 20220408
  Transmission Date: 20220720
  Serious: Yes (Hospitalization, Other)
  Sender: FDA-Public Use
  Company Number: JP-CELGENE-JPN-20220301183

PATIENT
  Age: 74 Year
  Sex: Female
  Weight: 48 kg

DRUGS (20)
  1. POMALYST [Suspect]
     Active Substance: POMALIDOMIDE
     Indication: Plasma cell myeloma
     Dosage: FREQUENCY TEXT: UNKNOWN?UNKNOWN
     Route: 048
     Dates: start: 20220205, end: 20220218
  2. REVLIMID [Suspect]
     Active Substance: LENALIDOMIDE
     Indication: Plasma cell myeloma
     Route: 048
     Dates: start: 20210806, end: 20220203
  3. LENADEX [Suspect]
     Active Substance: DEXAMETHASONE ACETATE
     Indication: Plasma cell myeloma
     Route: 048
     Dates: start: 20200706, end: 20220218
  4. ACYCLOVIR [Concomitant]
     Active Substance: ACYCLOVIR
     Indication: Product used for unknown indication
     Dosage: AFTER THE BREAKFAST, FOR 14 DAYS
  5. EDOXABAN TOSYLATE [Concomitant]
     Active Substance: EDOXABAN TOSYLATE
     Indication: Product used for unknown indication
     Dosage: AFTER THE BREAKFAST, FOR 14 DAYS
  6. DEXRABEPRAZOLE [Concomitant]
     Indication: Product used for unknown indication
     Dosage: AFTER THE BREAKFAST, FOR 14 DAYS
  7. CANDESARTAN [Concomitant]
     Active Substance: CANDESARTAN
     Indication: Product used for unknown indication
     Dosage: AFTER THE BREAKFAST, FOR 14 DAYS
  8. AMLODIPINE [Concomitant]
     Active Substance: AMLODIPINE BESYLATE
     Indication: Product used for unknown indication
     Dosage: AFTER THE BREAKFAST, FOR 14 DAYS
  9. BISOPROLOL FUMARATE [Concomitant]
     Active Substance: BISOPROLOL FUMARATE
     Indication: Product used for unknown indication
     Dosage: AFTER THE DINNER, FOR 14 DAYS
  10. BISOPROLOL FUMARATE [Concomitant]
     Active Substance: BISOPROLOL FUMARATE
     Dosage: AFTER THE DINNER, FOR 14 DAYS
  11. PRAVASTATIN [Concomitant]
     Active Substance: PRAVASTATIN
     Indication: Product used for unknown indication
     Dosage: AFTER THE DINNER, FOR 14 DAYS
  12. BILASTINE [Concomitant]
     Active Substance: BILASTINE
     Indication: Product used for unknown indication
     Dosage: BEFORE SLEEPING, FOR 14 DAYS
  13. TRIMEBUTINE [Concomitant]
     Active Substance: TRIMEBUTINE
     Indication: Product used for unknown indication
     Dosage: AFTER THE MEAL, FOR 14 DAYS
  14. METHYLCOBALAMIN [Concomitant]
     Active Substance: METHYLCOBALAMIN
     Indication: Product used for unknown indication
     Dosage: AFTER THE MEAL, FOR 14 DAYS
  15. MIROGABALIN BESYLATE [Concomitant]
     Active Substance: MIROGABALIN BESYLATE
     Indication: Product used for unknown indication
     Dosage: 2 TABLETS AFTER THE BREAKFAST AND 3 TABLETS BEFORE SLEEPING, FOR 14 DAYS
  16. OXYCONTIN [Concomitant]
     Active Substance: OXYCODONE HYDROCHLORIDE
     Indication: Product used for unknown indication
     Dosage: AT 8: 00 AND 20: 00, FOR 5 DAYS
  17. OXINORM [ORGOTEIN] [Concomitant]
     Indication: Product used for unknown indication
     Dosage: WHILE LOW BACK PAIN, FOR 15 TIMES, REPEATABLE IN 4 HOURS
  18. LEVOFLOXACIN [Concomitant]
     Active Substance: LEVOFLOXACIN
     Indication: Product used for unknown indication
     Dosage: AFTER THE MEAL, FOR 14 DAYS
     Route: 047
  19. CALONAL [Concomitant]
     Active Substance: ACETAMINOPHEN
     Indication: Product used for unknown indication
     Dosage: AFTER THE MEAL, FOR 14 DAYS
  20. ZOLEDRONIC ACID [Concomitant]
     Active Substance: ZOLEDRONIC ACID
     Indication: Product used for unknown indication
     Dosage: AFTER THE MEAL, FOR 14 DAYS
     Route: 041
     Dates: start: 20220128, end: 20220225

REACTIONS (2)
  - Pyoderma gangrenosum [Not Recovered/Not Resolved]
  - Rash [Unknown]

NARRATIVE: CASE EVENT DATE: 20220210
